FAERS Safety Report 7411111-0 (Version None)
Quarter: 2011Q2

REPORT INFORMATION
  Report Type: 
  Country: None (occurrence: None)
  Receive Date: 20110413
  Receipt Date: 20100204
  Transmission Date: 20111010
  Serious: No
  Sender: FDA-Public Use
  Company Number: US-BRISTOL-MYERS SQUIBB COMPANY-14963201

PATIENT
  Age: 87 Year
  Sex: Female
  Weight: 55 kg

DRUGS (5)
  1. ERBITUX [Suspect]
     Indication: LIP AND/OR ORAL CAVITY CANCER
     Dosage: NO. OF TREATMENS :7
     Dates: start: 20091201
  2. NORVASC [Concomitant]
  3. AVAPRO [Concomitant]
  4. ZOCOR [Concomitant]
  5. SYNTHROID [Concomitant]

REACTIONS (2)
  - SKIN LESION [None]
  - BURNING SENSATION [None]
